FAERS Safety Report 11913502 (Version 1)
Quarter: 2016Q1

REPORT INFORMATION
  Report Type: Spontaneous
  Country: DE (occurrence: DE)
  Receive Date: 20160113
  Receipt Date: 20160113
  Transmission Date: 20160526
  Serious: Yes (Other)
  Sender: FDA-Public Use
  Company Number: DE-PFIZER INC-2016014598

PATIENT
  Sex: Male

DRUGS (5)
  1. GANFORT [Concomitant]
     Active Substance: BIMATOPROST\TIMOLOL
     Dosage: UNK
  2. NOVAMINSULFON [Concomitant]
     Active Substance: METAMIZOLE
     Dosage: UNK
  3. PANTOPRAZOLE [Suspect]
     Active Substance: PANTOPRAZOLE SODIUM
     Dosage: 40 MG, UNK
     Route: 065
  4. LUMIGAN [Concomitant]
     Active Substance: BIMATOPROST
     Dosage: UNK
  5. MEMANTINE. [Concomitant]
     Active Substance: MEMANTINE
     Dosage: UNK

REACTIONS (1)
  - Glaucoma [Unknown]
